FAERS Safety Report 9471103 (Version 1)
Quarter: 2013Q3

REPORT INFORMATION
  Report Type: Spontaneous
  Country: US (occurrence: US)
  Receive Date: 20130822
  Receipt Date: 20130822
  Transmission Date: 20140515
  Serious: No
  Sender: FDA-Public Use
  Company Number: US-B.I. PHARMACEUTICALS,INC./RIDGEFIELD-2013-BI-25179BP

PATIENT
  Age: 83 Year
  Sex: Female
  Weight: 48 kg

DRUGS (9)
  1. SPIRIVA [Suspect]
     Indication: CHRONIC OBSTRUCTIVE PULMONARY DISEASE
     Dosage: 18 MCG
     Route: 048
     Dates: start: 2004
  2. CARVEDILOL [Concomitant]
     Dosage: 12.5 MG
     Route: 048
  3. ASPIRIN [Concomitant]
     Dosage: 81 MG
     Route: 048
  4. HYDROCODONE [Concomitant]
     Indication: ARTHRITIS
     Dosage: DOSE STRENGTH: 10/325 MG
     Route: 048
  5. PLAVIX [Concomitant]
     Dosage: 75 MG
     Route: 048
  6. VITAMIN D [Concomitant]
     Dosage: 1000 U
     Route: 048
  7. ATORVASTATIN [Concomitant]
     Dosage: 85 MG
     Route: 048
  8. IRON [Concomitant]
     Dosage: 6.5 MG
     Route: 048
  9. ANLODIPINE [Concomitant]
     Dosage: DOSE STRENGTH:5/40 MG; DAILY DOSE: 5/40 MG
     Route: 048

REACTIONS (4)
  - Arterial occlusive disease [Recovered/Resolved]
  - Arterial occlusive disease [Not Recovered/Not Resolved]
  - Abnormal loss of weight [Not Recovered/Not Resolved]
  - Incorrect route of drug administration [Recovered/Resolved]
